FAERS Safety Report 17496571 (Version 4)
Quarter: 2020Q2

REPORT INFORMATION
  Report Type: Report from Study
  Country: US (occurrence: US)
  Receive Date: 20200304
  Receipt Date: 20200513
  Transmission Date: 20200713
  Serious: Yes (Hospitalization, Other)
  Sender: FDA-Public Use
  Company Number: US-B.I. PHARMACEUTICALS,INC./RIDGEFIELD-2020-BI-011799

PATIENT
  Age: 67 Year
  Sex: Male

DRUGS (1)
  1. OFEV [Suspect]
     Active Substance: NINTEDANIB
     Indication: IDIOPATHIC PULMONARY FIBROSIS
     Route: 048
     Dates: start: 20200212

REACTIONS (7)
  - Upper respiratory tract infection [Not Recovered/Not Resolved]
  - Epistaxis [Recovered/Resolved]
  - Malaise [Not Recovered/Not Resolved]
  - Post procedural haemorrhage [Unknown]
  - Abdominal discomfort [Not Recovered/Not Resolved]
  - Sinus operation [Recovering/Resolving]
  - Loss of consciousness [Recovered/Resolved]

NARRATIVE: CASE EVENT DATE: 202002
